FAERS Safety Report 4519505-8 (Version None)
Quarter: 2005Q1

REPORT INFORMATION
  Report Type: 
  Country: None (occurrence: None)
  Receive Date: 20041101
  Receipt Date: 20031124
  Transmission Date: 20050727
  Serious: Yes (Other)
  Sender: FDA-Public Use
  Company Number: HQWYE315501DEC03

PATIENT
  Age: 62 Year
  Sex: Female
  Weight: 52.21 kg

DRUGS (1)
  1. PREMARIN [Suspect]
     Indication: MENOPAUSE
     Dosage: SEE IMAGE, ORAL
     Route: 048
     Dates: start: 19650101

REACTIONS (1)
  - BREAST CYST [None]
